FAERS Safety Report 6253454-2 (Version None)
Quarter: 2009Q2

REPORT INFORMATION
  Report Type: 
  Country: None (occurrence: None)
  Receive Date: 20090626
  Receipt Date: 20090327
  Transmission Date: 20091009
  Serious: Yes (Hospitalization)
  Sender: FDA-Public Use
  Company Number: 624326

PATIENT
  Age: 57 Year
  Sex: Female

DRUGS (2)
  1. CAPECITABINE [Suspect]
     Indication: COLON CANCER STAGE IV
     Dosage: 850 MG 2 PER 1 DAY ORAL
     Route: 048
  2. BEVACIZUMAB (BEVACIZUMAB) [Suspect]
     Indication: COLON CANCER STAGE IV
     Dosage: 7.5 1 PER 3 WEEK INTRAVENOUS
     Route: 042

REACTIONS (2)
  - CATHETER SITE HAEMORRHAGE [None]
  - THROMBOCYTOPENIA [None]
